FAERS Safety Report 7518232-2 (Version None)
Quarter: 2011Q2

REPORT INFORMATION
  Report Type: 
  Country: None (occurrence: None)
  Receive Date: 20110601
  Receipt Date: 20110601
  Transmission Date: 20111010
  Serious: Yes (Hospitalization)
  Sender: FDA-Public Use
  Company Number: None

PATIENT
  Age: 75 Year
  Sex: Male

DRUGS (1)
  1. BOCA BY UTILET ROH SWABS BOCA/UTLIET OR TRIAD [Suspect]
     Dosage: HE USES ROH SWABS BEFORE INJECTIONS

REACTIONS (5)
  - PRODUCT CONTAMINATION MICROBIAL [None]
  - GASTROINTESTINAL INFECTION [None]
  - INFECTION [None]
  - FATIGUE [None]
  - RASH [None]
